FAERS Safety Report 4673298-2 (Version None)
Quarter: 2005Q2

REPORT INFORMATION
  Report Type: 
  Country: None (occurrence: None)
  Receive Date: 20050524
  Receipt Date: 20050524
  Transmission Date: 20051028
  Serious: Yes (Hospitalization)
  Sender: FDA-Public Use
  Company Number: None

PATIENT
  Age: 57 Year
  Sex: Male
  Weight: 81.6475 kg

DRUGS (16)
  1. LISINOPRIL [Suspect]
     Indication: HYPERTENSION
     Dosage: 20 MG 1 TABLET DAILY
     Dates: start: 20040421, end: 20050201
  2. ASPIRIN [Concomitant]
  3. SIMETHICONE [Concomitant]
  4. METOCLOPRAMIDE [Concomitant]
  5. OXYCODONE AND ACETAMINOPHEN [Concomitant]
  6. DIAZEPAM [Concomitant]
  7. MORPHINE [Concomitant]
  8. VENLAFAXINE HCL [Concomitant]
  9. OMEPRAZOLE [Concomitant]
  10. PANCRELIPASE [Concomitant]
  11. SILDENAFIL CITRATE [Concomitant]
  12. ATENOLOL [Concomitant]
  13. BISACODYL [Concomitant]
  14. DOCUSATE [Concomitant]
  15. GLYBURIDE [Concomitant]
  16. METFORMIN [Concomitant]

REACTIONS (2)
  - ANOREXIA [None]
  - PANCREATITIS [None]
